FAERS Safety Report 18266240 (Version 1)
Quarter: 2020Q3

REPORT INFORMATION
  Report Type: Spontaneous
  Country: CH (occurrence: CH)
  Receive Date: 20200915
  Receipt Date: 20200915
  Transmission Date: 20201103
  Serious: Yes (Hospitalization)
  Sender: FDA-Public Use
  Company Number: CH-TEVA-2020-CH-1827279

PATIENT
  Age: 68 Year
  Sex: Male

DRUGS (3)
  1. PIPERACILLIN AND TAZOBACTAM [Suspect]
     Active Substance: PIPERACILLIN SODIUM\TAZOBACTAM SODIUM
     Indication: COVID-19
     Route: 065
     Dates: start: 2020
  2. HYDROXYCHLOROQUINE [Suspect]
     Active Substance: HYDROXYCHLOROQUINE
     Indication: COVID-19
     Dosage: SINGLE DOSE
     Route: 065
     Dates: start: 2020
  3. AMOXICILLIN W/CLAVULANIC ACID [Suspect]
     Active Substance: AMOXICILLIN\CLAVULANIC ACID
     Indication: COVID-19
     Route: 065
     Dates: start: 2020

REACTIONS (3)
  - Off label use [Unknown]
  - Glucose-6-phosphate dehydrogenase deficiency [Unknown]
  - Haemolysis [Unknown]

NARRATIVE: CASE EVENT DATE: 2020
